FAERS Safety Report 21176579 (Version 1)
Quarter: 2022Q3

REPORT INFORMATION
  Report Type: Report from Study
  Country: CN (occurrence: CN)
  Receive Date: 20220805
  Receipt Date: 20220805
  Transmission Date: 20221026
  Serious: Yes (Hospitalization)
  Sender: FDA-Public Use
  Company Number: CN-NOVARTISPH-NVSC2020CN362647

PATIENT
  Age: 62 Year
  Sex: Male

DRUGS (7)
  1. CAPECITABINE [Suspect]
     Active Substance: CAPECITABINE
     Indication: Metastatic gastric cancer
     Dosage: 1.5 G MORNING, 2 G NIGHT
     Route: 048
     Dates: start: 20200520
  2. CAPECITABINE [Suspect]
     Active Substance: CAPECITABINE
     Dosage: 1 G MORNING, 1.5 G AT NIGHT
     Route: 065
     Dates: start: 20200601, end: 20200731
  3. CAPECITABINE [Suspect]
     Active Substance: CAPECITABINE
     Dosage: 1 G 1.5 G AT NIGHT
     Route: 065
     Dates: start: 20200806
  4. PLACEBO [Suspect]
     Active Substance: UNSPECIFIED INGREDIENT
     Indication: Metastatic gastric cancer
     Dosage: 200 MG
     Route: 042
     Dates: start: 20200520
  5. OXYCODONE HYDROCHLORIDE [Concomitant]
     Active Substance: OXYCODONE HYDROCHLORIDE
     Indication: Abdominal pain
     Dosage: 40 MG, Q12H
     Route: 048
     Dates: start: 20200416
  6. DUPHALAC [Concomitant]
     Active Substance: LACTULOSE
     Indication: Constipation
     Dosage: 10 ML, TID
     Route: 048
     Dates: start: 20200511
  7. RECOMBINANT HUMAN GRANULOCYTE COLONY STIMULAT [Concomitant]
     Indication: Product used for unknown indication
     Dosage: 100 UG, QD
     Route: 065

REACTIONS (1)
  - Appendicitis [Recovered/Resolved]

NARRATIVE: CASE EVENT DATE: 20200731
